FAERS Safety Report 6283657-2 (Version None)
Quarter: 2009Q3

REPORT INFORMATION
  Report Type: 
  Country: None (occurrence: None)
  Receive Date: 20090724
  Receipt Date: 20090720
  Transmission Date: 20100115
  Serious: Yes (Hospitalization)
  Sender: FDA-Public Use
  Company Number: PHHO2009US09032

PATIENT
  Age: 68 Year
  Sex: Male

DRUGS (16)
  1. RAD 666 RAD+TAB [Suspect]
     Indication: NEUROENDOCRINE CARCINOMA
     Dosage: 10 MG, QD
     Route: 048
     Dates: start: 20090210, end: 20090715
  2. AVASTIN COMP-AVA+ [Suspect]
     Indication: NEUROENDOCRINE CARCINOMA
     Dosage: 15MG/KG EVERY 3 WEEKS
     Route: 048
     Dates: start: 20090303, end: 20090707
  3. ATORVASTATIN CALCIUM [Concomitant]
  4. DEXTROSE [Concomitant]
  5. DORZOLAMIDE [Concomitant]
  6. HYDROMORPHONE HCL [Concomitant]
  7. INSULIN ASPART [Concomitant]
  8. INSULIN HUMAN [Concomitant]
  9. LOSARTAN POTASSIUM [Concomitant]
  10. METHADONE HCL [Concomitant]
  11. ONDANSETRON HYDROCHLORIDE [Concomitant]
  12. PERINDOPRIL [Concomitant]
  13. PROMETHAZINE [Concomitant]
  14. SODIUM CHLORIDE [Concomitant]
  15. TEMAZEPAM [Concomitant]
  16. TRAVOPROST [Concomitant]

REACTIONS (4)
  - ABDOMINAL PAIN [None]
  - NAUSEA [None]
  - SMALL INTESTINAL OBSTRUCTION [None]
  - VOMITING [None]
